FAERS Safety Report 6574036-9 (Version None)
Quarter: 2010Q1

REPORT INFORMATION
  Report Type: 
  Country: None (occurrence: None)
  Receive Date: 20100113
  Receipt Date: 20091228
  Transmission Date: 20100710
  Serious: No
  Sender: FDA-Public Use
  Company Number: 300718787-2010-00001

PATIENT
  Age: 85 Year
  Sex: Female

DRUGS (3)
  1. CORNEA (TISSUE) [Suspect]
     Dates: start: 20090520
  2. STEROID TREATMENT [Concomitant]
  3. SERIAL VIT AMPHO [Concomitant]

REACTIONS (2)
  - EYE INFECTION FUNGAL [None]
  - GRAFT INFECTION [None]
